FAERS Safety Report 5126356-2 (Version None)
Quarter: 2006Q4

REPORT INFORMATION
  Report Type: 
  Country: None (occurrence: None)
  Receive Date: 20061010
  Receipt Date: 20061004
  Transmission Date: 20070319
  Serious: No
  Sender: FDA-Public Use
  Company Number: B0441170A

PATIENT
  Age: 22 Year
  Sex: Female

DRUGS (3)
  1. PAXIL [Suspect]
     Dosage: 25 MG/PER DAY
  2. RABEPRAZOLE SODIUM [Concomitant]
  3. BIRTH CONTROL [Concomitant]

REACTIONS (2)
  - OEDEMA [None]
  - RHABDOMYOLYSIS [None]
